FAERS Safety Report 12728598 (Version 1)
Quarter: 2016Q3

REPORT INFORMATION
  Report Type: Spontaneous
  Country: US (occurrence: US)
  Receive Date: 20160907
  Receipt Date: 20160907
  Transmission Date: 20161109
  Serious: Yes (Life-Threatening, Other)
  Sender: FDA-Public Use
  Company Number: None

PATIENT
  Age: 33 Year
  Sex: Female
  Weight: 67.95 kg

DRUGS (9)
  1. VENLAFAXINE XR [Suspect]
     Active Substance: VENLAFAXINE HYDROCHLORIDE
     Indication: DEPRESSION
     Route: 048
     Dates: start: 20141215, end: 20160501
  2. QUETIAPINE. [Concomitant]
     Active Substance: QUETIAPINE
  3. MAGNESIUM [Concomitant]
     Active Substance: MAGNESIUM
  4. MULTIVITAMIN [Concomitant]
     Active Substance: VITAMINS
  5. CLONAZEPAM. [Concomitant]
     Active Substance: CLONAZEPAM
  6. AMBIEN [Concomitant]
     Active Substance: ZOLPIDEM TARTRATE
  7. FISH OIL [Concomitant]
     Active Substance: FISH OIL
  8. LO LOESTRIN FE [Concomitant]
     Active Substance: ETHINYL ESTRADIOL\NORETHINDRONE ACETATE
  9. DULOXETINE. [Concomitant]
     Active Substance: DULOXETINE

REACTIONS (5)
  - Feeling abnormal [None]
  - Affective disorder [None]
  - Suicidal ideation [None]
  - Drug ineffective [None]
  - Crying [None]

NARRATIVE: CASE EVENT DATE: 20160601
